FAERS Safety Report 19779873 (Version 1)
Quarter: 2021Q3

REPORT INFORMATION
  Report Type: Spontaneous
  Country: GB (occurrence: GB)
  Receive Date: 20210902
  Receipt Date: 20210902
  Transmission Date: 20211014
  Serious: Yes (Other)
  Sender: FDA-Public Use
  Company Number: GB-BIO PRODUCTS LABORATORY LTD-2117935

PATIENT
  Age: 30 Year
  Sex: Female

DRUGS (1)
  1. HUMAN NORMAL IMMUNOGLOBULIN [Suspect]
     Active Substance: HUMAN IMMUNOGLOBULIN G
     Indication: LIVER DISORDER
     Route: 042

REACTIONS (4)
  - Drug ineffective for unapproved indication [Unknown]
  - Axillary vein thrombosis [Unknown]
  - Exposure during pregnancy [Unknown]
  - Off label use [Unknown]
